FAERS Safety Report 25446724 (Version 3)
Quarter: 2025Q3

REPORT INFORMATION
  Report Type: Spontaneous
  Country: US (occurrence: US)
  Receive Date: 20250617
  Receipt Date: 20250803
  Transmission Date: 20251020
  Serious: Yes (Other)
  Sender: UCB
  Company Number: US-UCBSA-2025028815

PATIENT
  Sex: Female

DRUGS (3)
  1. BIMZELX [Interacting]
     Active Substance: BIMEKIZUMAB-BKZX
     Indication: Ankylosing spondylitis
     Dosage: 160 MILLIGRAM, EV 4 WEEKS
     Route: 058
     Dates: start: 202502
  2. BIMZELX [Interacting]
     Active Substance: BIMEKIZUMAB-BKZX
     Indication: Axial spondyloarthritis
  3. NADOLOL [Interacting]
     Active Substance: NADOLOL
     Indication: Product used for unknown indication

REACTIONS (6)
  - Ankylosing spondylitis [Unknown]
  - Condition aggravated [Unknown]
  - Axial spondyloarthritis [Unknown]
  - Drug interaction [Unknown]
  - Drug hypersensitivity [Unknown]
  - Therapeutic product effect incomplete [Unknown]

NARRATIVE: CASE EVENT DATE: 20250101
